FAERS Safety Report 7745973-4 (Version None)
Quarter: 2011Q3

REPORT INFORMATION
  Report Type: 
  Country: None (occurrence: None)
  Receive Date: 20110913
  Receipt Date: 20110902
  Transmission Date: 20111222
  Serious: Yes (Other)
  Sender: FDA-Public Use
  Company Number: US-BAYER-2011-082107

PATIENT
  Age: 51 Year
  Sex: Female

DRUGS (1)
  1. YASMIN [Suspect]
     Dosage: UNK
     Dates: start: 20030401, end: 20040601

REACTIONS (7)
  - ANXIETY [None]
  - ANHEDONIA [None]
  - INJURY [None]
  - PAIN [None]
  - CORONARY ARTERY THROMBOSIS [None]
  - FEAR [None]
  - PSYCHIATRIC SYMPTOM [None]
